FAERS Safety Report 4421608-3 (Version None)
Quarter: 2004Q3

REPORT INFORMATION
  Report Type: 
  Country: None (occurrence: None)
  Receive Date: 20040804
  Receipt Date: 20040719
  Transmission Date: 20050211
  Serious: Yes (Hospitalization)
  Sender: FDA-Public Use
  Company Number: A01200402262

PATIENT
  Age: 86 Year
  Sex: Male

DRUGS (4)
  1. PLAVIX [Suspect]
     Dosage: 75 MG QD
     Route: 048
     Dates: start: 20030301, end: 20040426
  2. VASTAREL (TRIMETAZIDINE HYDROCHLORIDE) [Concomitant]
  3. INIPOMP (PANTOPRAZOLE) [Concomitant]
  4. TRANSIPEG (MACROGOL) [Concomitant]

REACTIONS (6)
  - GASTRIC ULCER [None]
  - JAUNDICE ACHOLURIC [None]
  - POST CHOLECYSTECTOMY SYNDROME [None]
  - POSTOPERATIVE ADHESION [None]
  - PROSTATE CANCER [None]
  - SMALL INTESTINAL OBSTRUCTION [None]
